FAERS Safety Report 7865712-6 (Version None)
Quarter: 2011Q4

REPORT INFORMATION
  Report Type: 
  Country: None (occurrence: None)
  Receive Date: 20111028
  Receipt Date: 20111019
  Transmission Date: 20120403
  Serious: Yes (Other)
  Sender: FDA-Public Use
  Company Number: JP-PFIZER INC-2011246717

PATIENT

DRUGS (2)
  1. AMIODARONE HCL [Suspect]
     Indication: CARDIAC FAILURE CONGESTIVE
     Dosage: 50 MG-200 MG DAILY
  2. AMIODARONE HCL [Suspect]
     Indication: ATRIAL FIBRILLATION
     Dosage: 400 MG, DAILY
     Route: 048

REACTIONS (8)
  - LUNG DISORDER [None]
  - DRUG INEFFECTIVE [None]
  - HEPATIC FUNCTION ABNORMAL [None]
  - ELECTROCARDIOGRAM QT PROLONGED [None]
  - CELL MARKER INCREASED [None]
  - SICK SINUS SYNDROME [None]
  - HYPOTHYROIDISM [None]
  - SINUS BRADYCARDIA [None]
